FAERS Safety Report 7118511-7 (Version None)
Quarter: 2010Q4

REPORT INFORMATION
  Report Type: 
  Country: None (occurrence: None)
  Receive Date: 20101123
  Receipt Date: 20100607
  Transmission Date: 20110411
  Serious: No
  Sender: FDA-Public Use
  Company Number: US-MYLANLABS-2010S1007417

PATIENT
  Age: 61 Year
  Sex: Female

DRUGS (14)
  1. CLONAZEPAM [Suspect]
     Indication: ANXIETY
     Route: 048
     Dates: start: 20091202
  2. CLONAZEPAM [Suspect]
     Route: 048
     Dates: end: 20100501
  3. CLONAZEPAM [Suspect]
     Route: 048
     Dates: start: 20100101, end: 20100101
  4. SYNTHROID [Concomitant]
  5. PROZAC [Concomitant]
     Indication: DEPRESSION
     Dates: start: 20091209
  6. CALCIUM [Concomitant]
  7. MULTI-VITAMIN [Concomitant]
  8. PRILOSEC [Concomitant]
  9. HYOSCYAMINE [Concomitant]
  10. TETRACYCLINE [Concomitant]
  11. FLAGYL [Concomitant]
  12. PEPTO-BISMOL [Concomitant]
  13. TUMS [Concomitant]
  14. VENTOLIN [Concomitant]
     Dosage: 2 PUFFS QID PRN
     Route: 055

REACTIONS (9)
  - ABDOMINAL PAIN UPPER [None]
  - ANAL PRURITUS [None]
  - DIARRHOEA [None]
  - GASTROINTESTINAL DISORDER [None]
  - HAEMORRHOIDAL HAEMORRHAGE [None]
  - INSOMNIA [None]
  - SOMNOLENCE [None]
  - THROMBOSIS [None]
  - WITHDRAWAL SYNDROME [None]
